FAERS Safety Report 24991431 (Version 1)
Quarter: 2025Q1

REPORT INFORMATION
  Report Type: Spontaneous
  Country: US (occurrence: US)
  Receive Date: 20250220
  Receipt Date: 20250220
  Transmission Date: 20250409
  Serious: No
  Sender: ARCUTIS
  Company Number: US-ARCUTIS BIOTHERAPEUTICS INC-2025AER000014

PATIENT

DRUGS (1)
  1. ZORYVE [Suspect]
     Active Substance: ROFLUMILAST
     Indication: Pruritus
     Dosage: UNK, QD
     Route: 061
     Dates: start: 20241111, end: 202411

REACTIONS (4)
  - Seborrhoea [Unknown]
  - Off label use [Unknown]
  - Drug effective for unapproved indication [Unknown]
  - Product container issue [Unknown]

NARRATIVE: CASE EVENT DATE: 20241101
